FAERS Safety Report 9795653 (Version 1)
Quarter: 2014Q1

REPORT INFORMATION
  Report Type: Spontaneous
  Country: US (occurrence: US)
  Receive Date: 20140103
  Receipt Date: 20140103
  Transmission Date: 20141002
  Serious: No
  Sender: FDA-Public Use
  Company Number: US-PFIZER INC-2014000284

PATIENT
  Age: 23 Year
  Sex: Male
  Weight: 81.63 kg

DRUGS (1)
  1. ADVIL [Suspect]
     Indication: TOOTHACHE
     Dosage: 440 MG, ONCE
     Route: 048
     Dates: start: 20131230, end: 20131230

REACTIONS (1)
  - Tongue blistering [Not Recovered/Not Resolved]
